FAERS Safety Report 7650382-2 (Version None)
Quarter: 2011Q3

REPORT INFORMATION
  Report Type: 
  Country: None (occurrence: None)
  Receive Date: 20110714
  Receipt Date: 20110704
  Transmission Date: 20111222
  Serious: Yes (Other)
  Sender: FDA-Public Use
  Company Number: AEDEU201100147

PATIENT
  Age: 52 Year
  Sex: Male

DRUGS (6)
  1. HUMAN INSULIN [Concomitant]
  2. GAMUNEX [Suspect]
     Indication: GUILLAIN-BARRE SYNDROME
     Dosage: 200 ML;Q3W;IV
     Route: 042
     Dates: start: 20101209
  3. GAMUNEX [Suspect]
     Indication: CHRONIC INFLAMMATORY DEMYELINATING POLYRADICULONEUROPATHY
     Dosage: 200 ML;Q3W;IV
     Route: 042
     Dates: start: 20101209
  4. MORPHINE [Concomitant]
  5. PLAVIX [Concomitant]
  6. LEVEMIR [Concomitant]

REACTIONS (1)
  - ACANTHOLYSIS [None]
